FAERS Safety Report 13652229 (Version 2)
Quarter: 2017Q3

REPORT INFORMATION
  Report Type: Spontaneous
  Country: US (occurrence: US)
  Receive Date: 20170614
  Receipt Date: 20170705
  Transmission Date: 20171127
  Serious: Yes (Other)
  Sender: FDA-Public Use
  Company Number: US-PFIZER INC-2017254095

PATIENT
  Sex: Male

DRUGS (1)
  1. VIAGRA [Suspect]
     Active Substance: SILDENAFIL CITRATE
     Dosage: CUT TABLETS IN HALF

REACTIONS (5)
  - Prostate cancer [Unknown]
  - Confusional state [Unknown]
  - Memory impairment [Unknown]
  - Macular degeneration [Unknown]
  - Nervousness [Unknown]
